FAERS Safety Report 18176487 (Version 1)
Quarter: 2020Q3

REPORT INFORMATION
  Report Type: Other
  Country: GB (occurrence: GB)
  Receive Date: 20200820
  Receipt Date: 20200820
  Transmission Date: 20201103
  Serious: No
  Sender: FDA-Public Use
  Company Number: GB-ROCHE-2662055

PATIENT
  Sex: Female

DRUGS (1)
  1. OCREVUS [Suspect]
     Active Substance: OCRELIZUMAB
     Indication: PRODUCT USED FOR UNKNOWN INDICATION
     Route: 065

REACTIONS (7)
  - Oral candidiasis [Recovered/Resolved]
  - Abdominal pain upper [Unknown]
  - Migraine [Unknown]
  - Lower respiratory tract infection [Unknown]
  - Polymenorrhoea [Unknown]
  - Vulvovaginal candidiasis [Unknown]
  - Fatigue [Unknown]
